FAERS Safety Report 14505622 (Version 1)
Quarter: 2018Q1

REPORT INFORMATION
  Report Type: Spontaneous
  Country: US (occurrence: US)
  Receive Date: 20180207
  Receipt Date: 20180207
  Transmission Date: 20180509
  Serious: Yes (Other)
  Sender: FDA-Public Use
  Company Number: None

PATIENT

DRUGS (2)
  1. SACUBITRIL-VALSARTAN [Suspect]
     Active Substance: SACUBITRIL\VALSARTAN
  2. POTASSIUM CHLORIDE. [Suspect]
     Active Substance: POTASSIUM CHLORIDE

REACTIONS (12)
  - Vomiting [None]
  - Electrocardiogram PR prolongation [None]
  - Electrocardiogram P wave abnormal [None]
  - Blood sodium decreased [None]
  - Blood urea increased [None]
  - Atrioventricular block first degree [None]
  - Electrocardiogram QRS complex prolonged [None]
  - Asthenia [None]
  - Blood creatine increased [None]
  - Urinary retention [None]
  - Electrocardiogram T wave abnormal [None]
  - Hyperkalaemia [None]
